FAERS Safety Report 10547686 (Version 1)
Quarter: 2014Q4

REPORT INFORMATION
  Report Type: Spontaneous
  Country: US (occurrence: None)
  Receive Date: 20141015
  Receipt Date: 20141015
  Transmission Date: 20150529
  Serious: No
  Sender: FDA-Public Use
  Company Number: 2014US003631

PATIENT
  Age: 55 Year
  Sex: Female

DRUGS (4)
  1. MULTIVITAMINS (VITAMINS NOS) [Concomitant]
  2. LEVOTHYROXINE (LEVOTHYROXINE SODIUM) [Concomitant]
  3. TRAZADONE (TRAZODONE HYDROCHLORIDE) [Concomitant]
  4. ICLUSIG [Suspect]
     Active Substance: PONATINIB
     Indication: CHRONIC MYELOID LEUKAEMIA
     Route: 048
     Dates: end: 20140821

REACTIONS (4)
  - Intentional product misuse [None]
  - Palpitations [None]
  - Vision blurred [None]
  - Headache [None]

NARRATIVE: CASE EVENT DATE: 20140824
